FAERS Safety Report 19840686 (Version 1)
Quarter: 2021Q3

REPORT INFORMATION
  Report Type: Report from Study
  Country: DE (occurrence: DE)
  Receive Date: 20210915
  Receipt Date: 20210915
  Transmission Date: 20211014
  Serious: Yes (Hospitalization, Other)
  Sender: FDA-Public Use
  Company Number: DE-TAKEDA-2021TUS056836

PATIENT
  Age: 2 Year
  Sex: Male

DRUGS (12)
  1. TEDUGLUTIDE [Suspect]
     Active Substance: TEDUGLUTIDE
     Dosage: 0.550 MILLIGRAM, QD
     Route: 065
     Dates: start: 20210606
  2. TEDUGLUTIDE [Suspect]
     Active Substance: TEDUGLUTIDE
     Dosage: 0.550 MILLIGRAM, QD
     Route: 065
     Dates: start: 20210606
  3. BACLOFEN. [Concomitant]
     Active Substance: BACLOFEN
     Indication: LEUKOENCEPHALOPATHY
     Dosage: 1.00 MILLIGRAM, TID
     Route: 065
  4. TEDUGLUTIDE [Suspect]
     Active Substance: TEDUGLUTIDE
     Indication: SHORT-BOWEL SYNDROME
     Dosage: 0.050 MILLIGRAM, QD
     Route: 065
     Dates: start: 20201015, end: 20210615
  5. TEDUGLUTIDE [Suspect]
     Active Substance: TEDUGLUTIDE
     Indication: SHORT-BOWEL SYNDROME
     Dosage: 0.050 MILLIGRAM, QD
     Route: 065
     Dates: start: 20201015, end: 20210615
  6. TEDUGLUTIDE [Suspect]
     Active Substance: TEDUGLUTIDE
     Dosage: 0.550 MILLIGRAM, QD
     Route: 065
     Dates: start: 20210606
  7. FLUCONAZOL [Concomitant]
     Active Substance: FLUCONAZOLE
     Indication: SEPSIS
     Dosage: 60.00 MILLIGRAM, QD
     Route: 065
     Dates: start: 20210616, end: 20210623
  8. CEFTAZIDIMA [Concomitant]
     Active Substance: CEFTAZIDIME
     Indication: SEPSIS
     Dosage: 20 MILLIGRAM, Q72H
     Route: 042
     Dates: start: 20210521, end: 20210604
  9. TEDUGLUTIDE [Suspect]
     Active Substance: TEDUGLUTIDE
     Indication: SHORT-BOWEL SYNDROME
     Dosage: 0.050 MILLIGRAM, QD
     Route: 065
     Dates: start: 20201015, end: 20210615
  10. TEDUGLUTIDE [Suspect]
     Active Substance: TEDUGLUTIDE
     Indication: SHORT-BOWEL SYNDROME
     Dosage: 0.050 MILLIGRAM, QD
     Route: 065
     Dates: start: 20201015, end: 20210615
  11. TEDUGLUTIDE [Suspect]
     Active Substance: TEDUGLUTIDE
     Dosage: 0.550 MILLIGRAM, QD
     Route: 065
     Dates: start: 20210606
  12. PIPERACILLIN/TAZOBACTAM [Concomitant]
     Active Substance: PIPERACILLIN SODIUM\TAZOBACTAM SODIUM
     Indication: SEPSIS
     Dosage: 730 MILLIGRAM, TID
     Route: 042
     Dates: start: 20210610, end: 20210624

REACTIONS (1)
  - Device related infection [Not Recovered/Not Resolved]

NARRATIVE: CASE EVENT DATE: 20210908
